FAERS Safety Report 7769682-0 (Version None)
Quarter: 2011Q3

REPORT INFORMATION
  Report Type: 
  Country: None (occurrence: None)
  Receive Date: 20110922
  Receipt Date: 20100827
  Transmission Date: 20111222
  Serious: No
  Sender: FDA-Public Use
  Company Number: US-ASTRAZENECA-2008UW04670

PATIENT
  Age: 477 Month
  Sex: Male
  Weight: 122.5 kg

DRUGS (15)
  1. SEROQUEL [Suspect]
     Indication: DEPRESSION
     Dosage: 100-200 MG
     Route: 048
     Dates: start: 20030701, end: 20070831
  2. SEROQUEL [Suspect]
     Dosage: 100-200 MG
     Route: 048
     Dates: start: 20051007
  3. ZYPREXA [Concomitant]
     Indication: DEPRESSION
  4. ZYPREXA [Concomitant]
     Indication: SCHIZOPHRENIA
  5. SEROQUEL [Suspect]
     Indication: SCHIZOPHRENIA
     Dosage: 100-200 MG
     Route: 048
     Dates: start: 20030701, end: 20070831
  6. SEROQUEL [Suspect]
     Indication: POST-TRAUMATIC STRESS DISORDER
     Dosage: 100-200 MG
     Route: 048
     Dates: start: 20030701, end: 20070831
  7. ZYPREXA [Concomitant]
     Indication: BIPOLAR DISORDER
  8. SEROQUEL [Suspect]
     Indication: BIPOLAR DISORDER
     Dosage: 100-200 MG
     Route: 048
     Dates: start: 20030701, end: 20070831
  9. SEROQUEL [Suspect]
     Dosage: 100-200 MG
     Route: 048
     Dates: start: 20051007
  10. SEROQUEL [Suspect]
     Dosage: 100-200 MG
     Route: 048
     Dates: start: 20051007
  11. ZYPREXA [Concomitant]
     Indication: POST-TRAUMATIC STRESS DISORDER
  12. SEROQUEL [Suspect]
     Indication: ANXIETY
     Dosage: 100-200 MG
     Route: 048
     Dates: start: 20030701, end: 20070831
  13. SEROQUEL [Suspect]
     Dosage: 100-200 MG
     Route: 048
     Dates: start: 20051007
  14. SEROQUEL [Suspect]
     Dosage: 100-200 MG
     Route: 048
     Dates: start: 20051007
  15. ZYPREXA [Concomitant]
     Indication: ANXIETY

REACTIONS (3)
  - DIABETIC COMPLICATION [None]
  - OBESITY [None]
  - TYPE 2 DIABETES MELLITUS [None]
